FAERS Safety Report 20349738 (Version 3)
Quarter: 2022Q1

REPORT INFORMATION
  Report Type: Report from Study
  Country: US (occurrence: US)
  Receive Date: 20220119
  Receipt Date: 20220326
  Transmission Date: 20220423
  Serious: No
  Sender: FDA-Public Use
  Company Number: US-NOVARTISTESTPH-NVSC2022US009410

PATIENT
  Sex: Female

DRUGS (1)
  1. ENTRESTO [Suspect]
     Active Substance: SACUBITRIL\VALSARTAN
     Indication: Product used for unknown indication
     Dosage: 1 DOSAGE FORM, BID
     Route: 048
     Dates: start: 20211203

REACTIONS (8)
  - Decreased immune responsiveness [Unknown]
  - Insomnia [Unknown]
  - Gait disturbance [Unknown]
  - Weight decreased [Unknown]
  - Hypertension [Unknown]
  - Fatigue [Recovering/Resolving]
  - Hypotension [Unknown]
  - Inappropriate schedule of product administration [Unknown]
